FAERS Safety Report 13694641 (Version 1)
Quarter: 2017Q2

REPORT INFORMATION
  Report Type: Spontaneous
  Country: FR (occurrence: FR)
  Receive Date: 20170627
  Receipt Date: 20170627
  Transmission Date: 20170830
  Serious: Yes (Other)
  Sender: FDA-Public Use
  Company Number: FR-ASTRAZENECA-2017SE64986

PATIENT
  Age: 24725 Day
  Sex: Female

DRUGS (10)
  1. XEROQUEL LP [Suspect]
     Active Substance: QUETIAPINE FUMARATE
     Route: 048
     Dates: start: 20170524
  2. DEROXAT [Concomitant]
     Active Substance: PAROXETINE HYDROCHLORIDE
     Dosage: 20
  3. ATARAX [Suspect]
     Active Substance: HYDROXYZINE HYDROCHLORIDE
     Route: 048
     Dates: end: 20170524
  4. LEXOMIL [Concomitant]
     Active Substance: BROMAZEPAM
  5. LYRICA [Concomitant]
     Active Substance: PREGABALIN
     Dosage: 75
  6. COVERSYL [Concomitant]
     Active Substance: PERINDOPRIL
     Dosage: 5
  7. TAHOR [Concomitant]
     Active Substance: ATORVASTATIN CALCIUM
     Dosage: 40
  8. PREVISCAN [Concomitant]
     Active Substance: FLUINDIONE
  9. XEROQUEL LP [Suspect]
     Active Substance: QUETIAPINE FUMARATE
     Route: 048
     Dates: start: 201601
  10. PRAXILENE [Concomitant]
     Active Substance: NAFRONYL
     Dosage: 200

REACTIONS (1)
  - Electrocardiogram QT prolonged [Recovering/Resolving]

NARRATIVE: CASE EVENT DATE: 20170521
